FAERS Safety Report 9620811 (Version 2)
Quarter: 2013Q4

REPORT INFORMATION
  Report Type: Report from Study
  Country: AR (occurrence: AR)
  Receive Date: 20131015
  Receipt Date: 20131105
  Transmission Date: 20140711
  Serious: Yes (Life-Threatening, Hospitalization, Other)
  Sender: FDA-Public Use
  Company Number: AR-BRISTOL-MYERS SQUIBB COMPANY-19500529

PATIENT
  Age: 73 Year
  Sex: Female

DRUGS (10)
  1. ABATACEPT SUBQ INJECTION 125MG/ML [Suspect]
     Indication: RHEUMATOID ARTHRITIS
     Dosage: 17OCT08-6MAR09,3APR13-25JUL13 WEEKLY SUBCUTANEOUS.
     Route: 058
     Dates: start: 20081017, end: 20130901
  2. OMEPRAZOLE [Suspect]
  3. METHOTREXATE [Concomitant]
     Route: 048
  4. FOLIC ACID [Concomitant]
     Route: 048
  5. PANTOPRAZOLE [Concomitant]
     Route: 048
  6. PREDNISONE [Concomitant]
     Route: 048
  7. DIOVAN [Concomitant]
     Dosage: 1DF:1TABLET,DIOVAN D
     Route: 048
  8. PREGABALIN [Concomitant]
  9. ASPIRIN [Concomitant]
     Route: 048
  10. NAPROXEN [Concomitant]

REACTIONS (4)
  - Renal failure acute [Recovered/Resolved with Sequelae]
  - Diarrhoea [Unknown]
  - Tubulointerstitial nephritis [Unknown]
  - Anaemia [Unknown]
